FAERS Safety Report 6929131-9 (Version None)
Quarter: 2010Q3

REPORT INFORMATION
  Report Type: 
  Country: None (occurrence: None)
  Receive Date: 20100812
  Receipt Date: 20100802
  Transmission Date: 20110219
  Serious: Yes (Hospitalization)
  Sender: FDA-Public Use
  Company Number: OMPQ-NO-1007S-0648

PATIENT
  Age: 71 Year
  Sex: Female

DRUGS (2)
  1. OMNIPAQUE 140 [Suspect]
     Indication: PRODUCT USED FOR UNKNOWN INDICATION
     Dosage: 100 ML, SINGLE DOSE, I.V.
     Route: 042
     Dates: start: 20100705, end: 20100705
  2. PL GRAN. (CAFFEINE, SALICYLAMIDE, PARACETAMOL; PROMETHAZINE METHYLENE [Suspect]
     Dates: start: 20100709, end: 20100709

REACTIONS (2)
  - ERYTHEMA MULTIFORME [None]
  - NASOPHARYNGITIS [None]
